FAERS Safety Report 8194575-7 (Version None)
Quarter: 2012Q1

REPORT INFORMATION
  Report Type: 
  Country: None (occurrence: None)
  Receive Date: 20120308
  Receipt Date: 20110811
  Transmission Date: 20120608
  Serious: No
  Sender: FDA-Public Use
  Company Number: US-GLAXOSMITHKLINE-A0940745A

PATIENT
  Age: 68 Year
  Sex: Female

DRUGS (2)
  1. NICOTINE POLACRILEX [Suspect]
     Indication: SMOKING CESSATION THERAPY
     Route: 002
  2. NICORETTE [Suspect]
     Route: 002

REACTIONS (10)
  - FEELING ABNORMAL [None]
  - GLOSSITIS [None]
  - TONGUE ULCERATION [None]
  - GLOSSODYNIA [None]
  - ORAL PAIN [None]
  - LIP SWELLING [None]
  - PARAESTHESIA ORAL [None]
  - SKIN BURNING SENSATION [None]
  - STOMATITIS [None]
  - INTENTIONAL DRUG MISUSE [None]
